FAERS Safety Report 7027007-2 (Version None)
Quarter: 2010Q4

REPORT INFORMATION
  Report Type: 
  Country: None (occurrence: None)
  Receive Date: 20101004
  Receipt Date: 20100929
  Transmission Date: 20110411
  Serious: Yes (Life-Threatening, Other)
  Sender: FDA-Public Use
  Company Number: AT-ASTRAZENECA-2010SE45678

PATIENT
  Age: 26 Year
  Sex: Female

DRUGS (43)
  1. SEROQUEL [Suspect]
     Route: 048
     Dates: start: 20090701, end: 20091202
  2. SEROQUEL [Suspect]
     Route: 048
     Dates: start: 20091203, end: 20091209
  3. SEROQUEL [Suspect]
     Route: 048
     Dates: start: 20091210, end: 20091212
  4. SEROQUEL [Suspect]
     Route: 048
     Dates: start: 20091203, end: 20091213
  5. SEROQUEL [Suspect]
     Route: 048
     Dates: start: 20091215, end: 20091215
  6. SEROQUEL [Suspect]
     Route: 048
     Dates: start: 20091216, end: 20091220
  7. SEROQUEL [Suspect]
     Route: 048
     Dates: start: 20091221, end: 20091221
  8. SEROQUEL [Suspect]
     Route: 048
     Dates: start: 20091222, end: 20100103
  9. SEROQUEL [Suspect]
     Route: 048
     Dates: start: 20100104, end: 20100104
  10. SEROQUEL [Suspect]
     Route: 048
     Dates: start: 20100105, end: 20100106
  11. SEROQUEL [Suspect]
     Route: 048
     Dates: start: 20100107, end: 20100107
  12. DEPAKENE [Suspect]
     Dates: start: 20090701
  13. RISPERDAL [Suspect]
     Dosage: QL 4 MG DAILY
     Dates: start: 20091203, end: 20091213
  14. RISPERDAL [Suspect]
     Dosage: QL 6 MG DAILY
     Dates: start: 20091215, end: 20091221
  15. RISPERDAL [Suspect]
     Dosage: QL 3 MG DAILY
     Dates: start: 20091222, end: 20100103
  16. RISPERDAL [Suspect]
     Dosage: CONSTA 50 MG ONCE A WEEK
     Dates: start: 20090701, end: 20091217
  17. RISPERDAL [Suspect]
     Dosage: CONSTA 100 MG ONCE A WEEK
     Dates: start: 20091223
  18. AKINETON [Suspect]
     Dates: start: 20090801, end: 20091213
  19. AKINETON [Suspect]
     Dosage: 13 PIECES OF 4 MG AKINETON RETARD
     Dates: start: 20091213, end: 20091213
  20. AKINETON [Suspect]
     Dates: start: 20091215, end: 20091215
  21. AKINETON [Suspect]
     Dates: start: 20091216, end: 20091216
  22. AKINETON [Suspect]
     Dates: start: 20091217
  23. RIVOTRIL [Suspect]
     Dates: start: 20090701, end: 20091203
  24. RIVOTRIL [Suspect]
     Dates: start: 20091204, end: 20091213
  25. RIVOTRIL [Suspect]
     Dates: start: 20091215, end: 20091215
  26. RIVOTRIL [Suspect]
     Dates: start: 20091216, end: 20100104
  27. RIVOTRIL [Suspect]
     Dates: start: 20100106
  28. DOMINAL FORTE [Suspect]
     Dates: start: 20090701
  29. HALDOL [Suspect]
     Dates: start: 20091203, end: 20091203
  30. HALDOL [Suspect]
     Dates: start: 20091204, end: 20091209
  31. HALDOL [Suspect]
     Dates: start: 20091210, end: 20091210
  32. HALDOL [Suspect]
     Dates: start: 20091211, end: 20091213
  33. HALDOL [Suspect]
     Dates: start: 20091223, end: 20100108
  34. HALDOL [Suspect]
     Dates: start: 20091223, end: 20100103
  35. HALDOL [Suspect]
     Dates: start: 20100104
  36. PANTOLOC [Concomitant]
     Dates: start: 20090701
  37. KEPPRA [Concomitant]
     Dates: start: 20090701, end: 20091207
  38. KEPPRA [Concomitant]
     Dates: start: 20091208, end: 20091213
  39. KEPPRA [Concomitant]
     Dates: start: 20091215, end: 20091215
  40. KEPPRA [Concomitant]
     Dates: start: 20091216
  41. THYREX [Concomitant]
     Dates: start: 20090701
  42. LOVENOX [Concomitant]
     Dates: start: 20091222, end: 20100108
  43. KEMADRIN [Concomitant]
     Dates: start: 20100219

REACTIONS (2)
  - INTENTIONAL OVERDOSE [None]
  - RESTLESSNESS [None]
